FAERS Safety Report 5338072-2 (Version None)
Quarter: 2007Q2

REPORT INFORMATION
  Report Type: 
  Country: None (occurrence: None)
  Receive Date: 20070530
  Receipt Date: 20070521
  Transmission Date: 20071010
  Serious: Yes (Other)
  Sender: FDA-Public Use
  Company Number: PHFR2007MT01667

PATIENT
  Sex: Male

DRUGS (1)
  1. EXELON [Suspect]
     Route: 048
     Dates: start: 20070501

REACTIONS (1)
  - BLOOD CREATININE INCREASED [None]
